FAERS Safety Report 6244424-9 (Version None)
Quarter: 2009Q2

REPORT INFORMATION
  Report Type: 
  Country: None (occurrence: None)
  Receive Date: 20090625
  Receipt Date: 20090615
  Transmission Date: 20091009
  Serious: Yes (Other)
  Sender: FDA-Public Use
  Company Number: ES-JNJFOC-20090605160

PATIENT
  Age: 29 Year
  Sex: Male

DRUGS (2)
  1. LOPERAMIDE HYDROCHLORIDE [Suspect]
     Route: 065
  2. LOPERAMIDE HYDROCHLORIDE [Suspect]
     Indication: DIARRHOEA INFECTIOUS
     Route: 065

REACTIONS (1)
  - PRURITUS [None]
